FAERS Safety Report 12430545 (Version 3)
Quarter: 2016Q3

REPORT INFORMATION
  Report Type: Spontaneous
  Country: FR (occurrence: FR)
  Receive Date: 20160602
  Receipt Date: 20160712
  Transmission Date: 20161109
  Serious: Yes (Life-Threatening, Hospitalization, Other)
  Sender: FDA-Public Use
  Company Number: FR-ASTRAZENECA-2016SE56632

PATIENT
  Age: 77 Year
  Sex: Male
  Weight: 70 kg

DRUGS (14)
  1. BRILIQUE [Suspect]
     Active Substance: TICAGRELOR
     Indication: EMBOLISM
     Route: 048
     Dates: start: 201605, end: 20160526
  2. INSPRA [Concomitant]
     Active Substance: EPLERENONE
     Indication: MYOCARDIAL INFARCTION
     Dates: start: 20160520
  3. BISOPROLOL [Suspect]
     Active Substance: BISOPROLOL
     Indication: MYOCARDIAL INFARCTION
     Dosage: 10.0MG UNKNOWN
     Route: 065
  4. KARDEGIC [Concomitant]
     Active Substance: ASPIRIN LYSINE
     Indication: MYOCARDIAL INFARCTION
     Dosage: 75 MG AT NOON
     Dates: start: 20160520
  5. BRILIQUE [Suspect]
     Active Substance: TICAGRELOR
     Indication: MYOCARDIAL INFARCTION
     Route: 048
     Dates: start: 20160520
  6. BRILIQUE [Suspect]
     Active Substance: TICAGRELOR
     Indication: EMBOLISM
     Route: 048
     Dates: start: 20160520
  7. LASILIX [Concomitant]
     Active Substance: FUROSEMIDE
     Indication: MYOCARDIAL INFARCTION
  8. ATORVASTATINE [Concomitant]
     Active Substance: ATORVASTATIN
     Indication: MYOCARDIAL INFARCTION
  9. PERINDOPRIL [Concomitant]
     Active Substance: PERINDOPRIL
     Indication: MYOCARDIAL INFARCTION
  10. LERCANIDIPINE [Concomitant]
     Active Substance: LERCANIDIPINE
     Indication: HYPERTENSION
     Dosage: 10.0MG UNKNOWN
  11. BRILIQUE [Suspect]
     Active Substance: TICAGRELOR
     Indication: MYOCARDIAL INFARCTION
     Route: 048
     Dates: start: 201605, end: 20160526
  12. BRILIQUE [Suspect]
     Active Substance: TICAGRELOR
     Indication: MYOCARDIAL INFARCTION
     Route: 048
     Dates: start: 20160526
  13. BISOPROLOL [Suspect]
     Active Substance: BISOPROLOL
     Indication: MYOCARDIAL INFARCTION
     Dosage: 5.0MG UNKNOWN
     Route: 065
  14. BRILIQUE [Suspect]
     Active Substance: TICAGRELOR
     Indication: EMBOLISM
     Route: 048
     Dates: start: 20160526

REACTIONS (6)
  - Blood pressure decreased [Recovering/Resolving]
  - Dyspnoea [Recovering/Resolving]
  - Pulmonary oedema [Recovered/Resolved]
  - Bradycardia [Recovering/Resolving]
  - Drug dose omission [Unknown]
  - Vascular stent thrombosis [Unknown]

NARRATIVE: CASE EVENT DATE: 2016
